FAERS Safety Report 6860885-6 (Version None)
Quarter: 2010Q3

REPORT INFORMATION
  Report Type: 
  Country: None (occurrence: None)
  Receive Date: 20100720
  Receipt Date: 20100706
  Transmission Date: 20110219
  Serious: Yes (Other)
  Sender: FDA-Public Use
  Company Number: US-ELI_LILLY_AND_COMPANY-US201007001963

PATIENT
  Sex: Female

DRUGS (14)
  1. FORTEO [Suspect]
     Dosage: 20 UG, DAILY (1/D)
  2. METHOTREXATE [Concomitant]
  3. ZANAFLEX [Concomitant]
     Dosage: 4 MG, UNK
  4. POTASSIUM CHLORIDE [Concomitant]
  5. THYROID TAB [Concomitant]
     Dosage: 75 UG, UNK
  6. PROZAC [Concomitant]
  7. FENTANYL [Concomitant]
  8. CALCIUM [Concomitant]
  9. VITAMIN D [Concomitant]
  10. CLONIDINE [Concomitant]
  11. NORCO [Concomitant]
  12. FOLIC ACID [Concomitant]
  13. VITAMIN B-12 [Concomitant]
  14. DIAZIDE [Concomitant]
     Dosage: 37.5 MG, UNK

REACTIONS (7)
  - BACK DISORDER [None]
  - BACK PAIN [None]
  - BREAST CANCER [None]
  - INTERVERTEBRAL DISC DEGENERATION [None]
  - INTERVERTEBRAL DISC PROTRUSION [None]
  - SPINAL FRACTURE [None]
  - SURGERY [None]
